FAERS Safety Report 6107606-2 (Version None)
Quarter: 2009Q1

REPORT INFORMATION
  Report Type: 
  Country: None (occurrence: None)
  Receive Date: 20090309
  Receipt Date: 20090226
  Transmission Date: 20090719
  Serious: Yes (Hospitalization, Other)
  Sender: FDA-Public Use
  Company Number: FR-PFIZER INC-2009164039

PATIENT

DRUGS (3)
  1. XALATAN [Suspect]
     Indication: OCULAR HYPERTENSION
     Dosage: UNK
     Dates: start: 20010101
  2. AZOPT [Suspect]
     Indication: OCULAR HYPERTENSION
  3. TRAVATAN [Suspect]
     Dosage: UNK
     Dates: start: 20081212

REACTIONS (2)
  - ACUTE RESPIRATORY FAILURE [None]
  - BRONCHOSPASM [None]
